FAERS Safety Report 8069813-1 (Version None)
Quarter: 2012Q1

REPORT INFORMATION
  Report Type: 
  Country: None (occurrence: None)
  Receive Date: 20120125
  Receipt Date: 20120125
  Transmission Date: 20120608
  Serious: No
  Sender: FDA-Public Use
  Company Number: None

PATIENT
  Age: 49 Year
  Sex: Female
  Weight: 70.306 kg

DRUGS (2)
  1. VENLAFAXINE HCL EXTENDED-RELEASE [Concomitant]
     Dosage: 300 MG
     Route: 048
     Dates: start: 20120112, end: 20120123
  2. VENLAFAXINE HCL EXTENDED-RELEASE [Suspect]
     Indication: MAJOR DEPRESSION
     Dosage: 300 MG
     Route: 048
     Dates: start: 20110513, end: 20110516

REACTIONS (3)
  - PRODUCT SUBSTITUTION ISSUE [None]
  - GASTROINTESTINAL DISORDER [None]
  - DRUG WITHDRAWAL SYNDROME [None]
